FAERS Safety Report 9553727 (Version 1)
Quarter: 2013Q3

REPORT INFORMATION
  Report Type: Spontaneous
  Country: US (occurrence: None)
  Receive Date: 20130924
  Receipt Date: 20130924
  Transmission Date: 20140515
  Serious: Yes (Hospitalization, Other)
  Sender: FDA-Public Use
  Company Number: None

PATIENT
  Age: 36 Year
  Sex: Female
  Weight: 55.79 kg

DRUGS (1)
  1. MODAFINIL [Suspect]
     Indication: SOMNOLENCE
     Dosage: 200MG IN A.M. 100 MG AFTERNOON, TWICE DAILY, TAKEN BY MOUTH
     Dates: start: 20130727, end: 20130820

REACTIONS (3)
  - Respiratory failure [None]
  - Hypotension [None]
  - Unresponsive to stimuli [None]
